FAERS Safety Report 17454699 (Version 1)
Quarter: 2020Q1

REPORT INFORMATION
  Report Type: Spontaneous
  Country: AU (occurrence: AU)
  Receive Date: 20200225
  Receipt Date: 20200225
  Transmission Date: 20200409
  Serious: Yes (Other)
  Sender: FDA-Public Use
  Company Number: AU-SUN PHARMACEUTICAL INDUSTRIES LTD-2020RR-237851

PATIENT
  Age: 65 Year
  Sex: Female

DRUGS (3)
  1. ADRENALINE [Suspect]
     Active Substance: EPINEPHRINE
     Indication: ANIMAL BITE
     Dosage: 5 MG OF 1:1000
     Route: 042
  2. SALBUTAMOL [Suspect]
     Active Substance: ALBUTEROL
     Indication: ANIMAL BITE
     Dosage: 5 MILLIGRAM, UNK
     Route: 065
  3. HYDROCORTISONE. [Suspect]
     Active Substance: HYDROCORTISONE
     Indication: ANIMAL BITE
     Dosage: 100 MILLIGRAM, UNK
     Route: 042

REACTIONS (7)
  - Presyncope [Unknown]
  - Chest pain [Unknown]
  - Overdose [Unknown]
  - Headache [Unknown]
  - Ventricular tachycardia [Unknown]
  - Therapeutic product effect incomplete [Unknown]
  - Sinus tachycardia [Unknown]
